FAERS Safety Report 10705676 (Version 3)
Quarter: 2015Q1

REPORT INFORMATION
  Report Type: Spontaneous
  Country: US (occurrence: US)
  Receive Date: 20150112
  Receipt Date: 20150128
  Transmission Date: 20150721
  Serious: Yes (Death, Hospitalization, Other)
  Sender: FDA-Public Use
  Company Number: US-TEVA-517474USA

PATIENT
  Age: 71 Year
  Sex: Female
  Weight: 31.78 kg

DRUGS (9)
  1. ROXICODONE [Concomitant]
     Active Substance: OXYCODONE HYDROCHLORIDE
  2. SUTENT [Suspect]
     Active Substance: SUNITINIB MALATE
     Indication: HAEMANGIOPERICYTOMA
     Dosage: 37.5 MILLIGRAM DAILY;
     Route: 048
     Dates: start: 20140820
  3. SUTENT [Suspect]
     Active Substance: SUNITINIB MALATE
     Dosage: 25 MILLIGRAM DAILY;
     Route: 048
     Dates: end: 20141028
  4. WARFARIN [Suspect]
     Active Substance: WARFARIN
     Indication: PULMONARY EMBOLISM
     Route: 065
  5. HYDRODIURIL [Concomitant]
     Active Substance: HYDROCHLOROTHIAZIDE
     Indication: BLOOD PRESSURE
     Dosage: 25 MILLIGRAM DAILY;
  6. ZOFRAN [Concomitant]
     Active Substance: ONDANSETRON HYDROCHLORIDE
  7. KADIAN [Concomitant]
     Active Substance: MORPHINE SULFATE
     Dosage: 30MG DAILY; 1 TABLET 3 TIMES DAILY
     Route: 048
  8. B COMPLETE [Concomitant]
     Route: 048
  9. PERCOCET [Concomitant]
     Active Substance: ACETAMINOPHEN\OXYCODONE HYDROCHLORIDE
     Dosage: 10-325 MG, EVERY 4 HOURS AS NEEDED
     Route: 048

REACTIONS (29)
  - Decreased appetite [Unknown]
  - Thrombocytopenia [Unknown]
  - Constipation [Unknown]
  - Headache [Unknown]
  - Nodule [Unknown]
  - Breath sounds abnormal [Unknown]
  - Gastric ulcer haemorrhage [Unknown]
  - Nausea [Recovered/Resolved]
  - Oral pain [Not Recovered/Not Resolved]
  - Anaemia [Unknown]
  - Pain in extremity [Unknown]
  - Bone pain [Unknown]
  - Sleep disorder [Unknown]
  - Musculoskeletal chest pain [Unknown]
  - Pancytopenia [Unknown]
  - Somnolence [Not Recovered/Not Resolved]
  - Fatigue [Unknown]
  - Activities of daily living impaired [Unknown]
  - Malignant haemangiopericytoma metastatic [Fatal]
  - Asthenia [Unknown]
  - Joint range of motion decreased [Unknown]
  - Tumour flare [Unknown]
  - Stomatitis [Unknown]
  - Neoplasm [Unknown]
  - Confusional state [Unknown]
  - Mucosal inflammation [Unknown]
  - Oedema [Not Recovered/Not Resolved]
  - Back pain [Unknown]
  - Kyphosis [Unknown]

NARRATIVE: CASE EVENT DATE: 201409
